FAERS Safety Report 24406281 (Version 3)
Quarter: 2025Q1

REPORT INFORMATION
  Report Type: Other
  Country: CA (occurrence: CA)
  Receive Date: 20241007
  Receipt Date: 20250313
  Transmission Date: 20250408
  Serious: Yes (Other)
  Sender: TOLMAR
  Company Number: CA-TOLMAR, INC.-24CA052692

PATIENT
  Age: 61 Year
  Sex: Male

DRUGS (5)
  1. ELIGARD [Suspect]
     Active Substance: LEUPROLIDE ACETATE
     Indication: Prostate cancer
     Dosage: 22.5 MILLIGRAM, Q 3 MONTH
     Route: 058
     Dates: start: 20240624
  2. ELIGARD [Suspect]
     Active Substance: LEUPROLIDE ACETATE
     Dosage: 22.5 MILLIGRAM, Q 3 MONTH
     Route: 058
     Dates: start: 20240917
  3. ELIGARD [Suspect]
     Active Substance: LEUPROLIDE ACETATE
     Dosage: 22.5 MILLIGRAM, Q 3 MONTH
     Route: 058
     Dates: start: 20241210
  4. ELIGARD [Suspect]
     Active Substance: LEUPROLIDE ACETATE
     Dosage: 22.5 MILLIGRAM, Q 3 MONTH
     Route: 058
     Dates: start: 20250304
  5. UNSPECIFIED INGREDIENT [Concomitant]
     Active Substance: UNSPECIFIED INGREDIENT
     Indication: Product used for unknown indication

REACTIONS (19)
  - Device breakage [Not Recovered/Not Resolved]
  - Sensation of foreign body [Not Recovered/Not Resolved]
  - Pneumonia [Unknown]
  - Brain fog [Recovered/Resolved]
  - Dizziness postural [Recovered/Resolved]
  - Chronic obstructive pulmonary disease [Unknown]
  - Cardiac disorder [Not Recovered/Not Resolved]
  - Exercise tolerance decreased [Unknown]
  - Sleep apnoea syndrome [Unknown]
  - Muscular weakness [Unknown]
  - Paraesthesia [Unknown]
  - Micturition urgency [Unknown]
  - Dysuria [Unknown]
  - Pollakiuria [Unknown]
  - Hot flush [Unknown]
  - Fatigue [Unknown]
  - Night sweats [Unknown]
  - Weight increased [Unknown]
  - Prostatic specific antigen abnormal [Unknown]

NARRATIVE: CASE EVENT DATE: 20240917
